FAERS Safety Report 8303512-3 (Version None)
Quarter: 2012Q2

REPORT INFORMATION
  Report Type: 
  Country: None (occurrence: None)
  Receive Date: 20120419
  Receipt Date: 20110119
  Transmission Date: 20120825
  Serious: No
  Sender: FDA-Public Use
  Company Number: AECAN201100014

PATIENT
  Age: 32 Year
  Sex: Female
  Weight: 72.5755 kg

DRUGS (1)
  1. PROLASTIN [Suspect]
     Indication: ALPHA-1 ANTI-TRYPSIN DEFICIENCY
     Dosage: 10 GM;QOW;IV
     Route: 042
     Dates: start: 20100623

REACTIONS (1)
  - WEIGHT INCREASED [None]
